FAERS Safety Report 7591837-9 (Version None)
Quarter: 2011Q2

REPORT INFORMATION
  Report Type: 
  Country: None (occurrence: None)
  Receive Date: 20110627
  Receipt Date: 20110620
  Transmission Date: 20111010
  Serious: Yes (Other)
  Sender: FDA-Public Use
  Company Number: 2011SP028917

PATIENT
  Sex: Female

DRUGS (1)
  1. IMPLANON [Suspect]
     Indication: PRODUCT USED FOR UNKNOWN INDICATION

REACTIONS (7)
  - COLLAPSE OF LUNG [None]
  - DEVICE BREAKAGE [None]
  - VICTIM OF CRIME [None]
  - SKIN DISORDER [None]
  - WEIGHT DECREASED [None]
  - STRESS [None]
  - IMPLANT SITE MASS [None]
